FAERS Safety Report 15660123 (Version 1)
Quarter: 2018Q4

REPORT INFORMATION
  Report Type: Spontaneous
  Country: CA (occurrence: CA)
  Receive Date: 20181127
  Receipt Date: 20181127
  Transmission Date: 20190205
  Serious: Yes (Other)
  Sender: FDA-Public Use
  Company Number: CA-CELLTRION INC.-2018CA021960

PATIENT

DRUGS (3)
  1. INFLECTRA [Suspect]
     Active Substance: INFLIXIMAB-DYYB
     Dosage: 5 MG/KG, Q (EVERY) 0, 2, 6WEEKS, THEN EVERY 8 WEEKS
     Route: 042
     Dates: start: 20180921, end: 20180921
  2. INFLECTRA [Suspect]
     Active Substance: INFLIXIMAB-DYYB
     Dosage: 5 MG/KG, Q (EVERY) 0, 2, 6WEEKS, THEN EVERY 8 WEEKS
     Route: 042
     Dates: start: 20180816
  3. INFLECTRA [Suspect]
     Active Substance: INFLIXIMAB-DYYB
     Indication: CROHN^S DISEASE
     Dosage: 448 MG, CYCLIC (EVERY 0, 26 WEEKS, THEN EVERY 8  WEEKS)
     Route: 042
     Dates: start: 20180802

REACTIONS (9)
  - Anal fissure [Unknown]
  - Dysphagia [Recovered/Resolved]
  - Arthralgia [Unknown]
  - Throat irritation [Not Recovered/Not Resolved]
  - Headache [Recovered/Resolved]
  - Fatigue [Unknown]
  - Pharyngeal oedema [Unknown]
  - Inappropriate schedule of product administration [Unknown]
  - Psoriasis [Unknown]

NARRATIVE: CASE EVENT DATE: 20180802
